FAERS Safety Report 14349560 (Version 1)
Quarter: 2018Q1

REPORT INFORMATION
  Report Type: Spontaneous
  Country: US (occurrence: US)
  Receive Date: 20180103
  Receipt Date: 20180103
  Transmission Date: 20180509
  Serious: Yes (Life-Threatening, Hospitalization, Disabling)
  Sender: FDA-Public Use
  Company Number: None

PATIENT
  Sex: Female
  Weight: 62.6 kg

DRUGS (1)
  1. MIRENA [Suspect]
     Active Substance: LEVONORGESTREL

REACTIONS (11)
  - Breast mass [None]
  - Cardiac disorder [None]
  - Anxiety [None]
  - Dyspnoea [None]
  - Atrial fibrillation [None]
  - Hyperhidrosis [None]
  - Affective disorder [None]
  - Sexual dysfunction [None]
  - Presyncope [None]
  - Oestrogen receptor positive breast cancer [None]
  - Lymphadenopathy [None]

NARRATIVE: CASE EVENT DATE: 20170415
